FAERS Safety Report 10210008 (Version 1)
Quarter: 2014Q2

REPORT INFORMATION
  Report Type: Spontaneous
  Country: FR (occurrence: FR)
  Receive Date: 20140602
  Receipt Date: 20140602
  Transmission Date: 20141212
  Serious: Yes (Hospitalization)
  Sender: FDA-Public Use
  Company Number: FR-JNJFOC-20140512178

PATIENT
  Age: 11 Year
  Sex: Female
  Weight: 35 kg

DRUGS (2)
  1. RISPERDAL [Suspect]
     Indication: PRODUCT USED FOR UNKNOWN INDICATION
     Route: 048
     Dates: start: 20140210, end: 20140218
  2. RISPERDAL [Suspect]
     Indication: PRODUCT USED FOR UNKNOWN INDICATION
     Route: 048

REACTIONS (7)
  - Suicide attempt [Recovered/Resolved]
  - Hallucination [Recovered/Resolved]
  - Mental impairment [Recovered/Resolved]
  - Somatoform disorder [Recovered/Resolved]
  - Aggression [Recovered/Resolved]
  - Abnormal behaviour [Unknown]
  - Homicidal ideation [Recovered/Resolved]
